FAERS Safety Report 12901692 (Version 3)
Quarter: 2017Q3

REPORT INFORMATION
  Report Type: Spontaneous
  Country: JP (occurrence: JP)
  Receive Date: 20161102
  Receipt Date: 20170811
  Transmission Date: 20171127
  Serious: Yes (Hospitalization, Other)
  Sender: FDA-Public Use
  Company Number: JP-AMGEN-JPNSP2016152854

PATIENT
  Age: 63 Year
  Sex: Female
  Weight: 68.5 kg

DRUGS (9)
  1. CALCIUM LEVOFOLINATE [Concomitant]
     Active Substance: LEVOLEUCOVORIN CALCIUM
     Indication: RECTAL CANCER
     Dosage: 325 MG, Q2WEEKS
     Route: 041
     Dates: start: 20160908, end: 20160927
  2. ELPLAT [Suspect]
     Active Substance: OXALIPLATIN
     Indication: METASTASES TO LYMPH NODES
  3. EMEND [Concomitant]
     Active Substance: APREPITANT
     Indication: SUPPORTIVE CARE
     Dosage: UNK
     Route: 048
     Dates: start: 20160927
  4. CALCIUM LEVOFOLINATE [Concomitant]
     Active Substance: LEVOLEUCOVORIN CALCIUM
     Indication: METASTASES TO LYMPH NODES
  5. RINDERON                           /00008501/ [Concomitant]
     Active Substance: BETAMETHASONE
     Indication: SUPPORTIVE CARE
     Dosage: UNK
     Route: 065
     Dates: start: 20160927
  6. VECTIBIX [Suspect]
     Active Substance: PANITUMUMAB
     Indication: RECTAL CANCER METASTATIC
     Dosage: 400 MG, Q2WEEKS
     Route: 041
     Dates: start: 20160825, end: 20160927
  7. 5-FU                               /00098801/ [Suspect]
     Active Substance: FLUOROURACIL
     Indication: METASTASES TO LYMPH NODES
     Dosage: 4000 MG, Q2WEEKS
     Route: 041
     Dates: start: 20160908, end: 20160929
  8. ELPLAT [Suspect]
     Active Substance: OXALIPLATIN
     Indication: RECTAL CANCER
     Dosage: 140 MG, Q2WEEKS
     Route: 041
     Dates: start: 20160908, end: 20160927
  9. 5-FU                               /00098801/ [Suspect]
     Active Substance: FLUOROURACIL
     Indication: RECTAL CANCER
     Dosage: 675 MG, Q2WEEKS
     Route: 040
     Dates: start: 20160908, end: 20160927

REACTIONS (13)
  - Decreased appetite [Recovering/Resolving]
  - Abdominal discomfort [Recovering/Resolving]
  - White blood cell count decreased [Recovered/Resolved]
  - Dyspnoea [Unknown]
  - Abdominal pain lower [Unknown]
  - Platelet count decreased [Recovered/Resolved]
  - Rectal cancer metastatic [Unknown]
  - Condition aggravated [Unknown]
  - Productive cough [Unknown]
  - Metastases to liver [Unknown]
  - Metastases to lymph nodes [Unknown]
  - Gastrointestinal disorder [Unknown]
  - Abdominal pain upper [Unknown]

NARRATIVE: CASE EVENT DATE: 2016
